FAERS Safety Report 6278040-X (Version None)
Quarter: 2009Q3

REPORT INFORMATION
  Report Type: 
  Country: None (occurrence: None)
  Receive Date: 20090722
  Receipt Date: 20090717
  Transmission Date: 20100115
  Serious: Yes (Death)
  Sender: FDA-Public Use
  Company Number: PHEH2009US07324

PATIENT
  Sex: Male
  Weight: 111 kg

DRUGS (17)
  1. ZOMETA [Suspect]
     Indication: PROSTATE CANCER METASTATIC
     Dosage: 3 MG IV EVERY 3 TO 4 WEEKS
     Route: 042
     Dates: start: 20081030, end: 20090422
  2. TAXOTERE [Concomitant]
     Indication: PROSTATE CANCER
     Dosage: 75 MG/M2
     Dates: start: 20071120, end: 20090330
  3. MITOXANTRONE [Concomitant]
     Indication: PROSTATE CANCER
     Dosage: 12 MG/M2
     Dates: start: 20090422, end: 20090513
  4. GLYBURIDE [Concomitant]
     Indication: DIABETES MELLITUS
     Dosage: 5/500 BID
  5. ARANESP [Concomitant]
     Indication: ANAEMIA
     Dosage: 500 MCG
     Dates: start: 20080529, end: 20090513
  6. KYTRIL [Concomitant]
     Dosage: 1 MG, UNK
     Dates: start: 20071120, end: 20090513
  7. DECADRON [Concomitant]
     Dosage: 10 MG, UNK
     Dates: start: 20071120, end: 20090513
  8. ALOXI [Concomitant]
     Dosage: 0.25 MG, UNK
     Dates: start: 20081030, end: 20090330
  9. HYZAAR [Concomitant]
     Indication: BLOOD PRESSURE
     Dosage: 100/25 QD
  10. NORVASC [Concomitant]
     Indication: BLOOD PRESSURE
     Dosage: 10 MG, QD
  11. TOPROL-XL [Concomitant]
     Indication: BLOOD PRESSURE
     Dosage: 25 MG, QD
  12. ASPIRIN [Concomitant]
     Dosage: 81 MG, QD
  13. FENTANYL-100 [Concomitant]
     Indication: PAIN
     Dosage: 50 MCG PATCH Q72 HOURS
     Route: 062
  14. MORPHINE SULFATE [Concomitant]
     Indication: PAIN
     Dosage: 15 TO 30 MG Q4H PRN PAIN
  15. LANTUS [Concomitant]
     Dosage: 20 UNITS SQ QD PRN
  16. MEGACE [Concomitant]
     Dosage: 400 MG, QD
  17. M.V.I. [Concomitant]
     Dosage: UNK

REACTIONS (6)
  - ASCITES [None]
  - MALIGNANT NEOPLASM PROGRESSION [None]
  - NUCLEAR MAGNETIC RESONANCE IMAGING ABNORMAL [None]
  - PLEURAL EFFUSION [None]
  - PLEURAL NEOPLASM [None]
  - RETROPERITONEAL LYMPHADENOPATHY [None]
